FAERS Safety Report 9427666 (Version 1)
Quarter: 2013Q3

REPORT INFORMATION
  Report Type: Report from Study
  Country: US (occurrence: US)
  Receive Date: 20130730
  Receipt Date: 20130730
  Transmission Date: 20140515
  Serious: No
  Sender: FDA-Public Use
  Company Number: US-ABBOTT-12P-163-0997702-00

PATIENT
  Sex: Female
  Weight: 62.65 kg

DRUGS (7)
  1. NIASPAN (COATED) [Suspect]
     Indication: HIGH DENSITY LIPOPROTEIN DECREASED
     Dosage: AT BEDTIME
     Dates: start: 201209
  2. NIASPAN (COATED) [Suspect]
     Indication: LOW DENSITY LIPOPROTEIN INCREASED
  3. PRAVASTATIN [Suspect]
     Indication: PRODUCT USED FOR UNKNOWN INDICATION
  4. ASA [Concomitant]
     Indication: PRODUCT USED FOR UNKNOWN INDICATION
  5. OMEGA 3 [Concomitant]
     Indication: PRODUCT USED FOR UNKNOWN INDICATION
  6. VITAMIN D [Concomitant]
     Indication: PRODUCT USED FOR UNKNOWN INDICATION
  7. TRINESSA [Concomitant]
     Indication: PRODUCT USED FOR UNKNOWN INDICATION

REACTIONS (4)
  - Myalgia [Recovered/Resolved]
  - Myalgia [Recovered/Resolved]
  - Pain in extremity [Recovered/Resolved]
  - Pain in extremity [Recovered/Resolved]
